FAERS Safety Report 8851619 (Version 3)
Quarter: 2012Q4

REPORT INFORMATION
  Report Type: 
  Country: DE (occurrence: DE)
  Receive Date: 20121022
  Receipt Date: 20121221
  Transmission Date: 20130627
  Serious: Yes (Other)
  Sender: FDA-Public Use
  Company Number: DE-US-EMD SERONO, INC.-7168389

PATIENT
  Age: 35 Year
  Sex: Female

DRUGS (2)
  1. REBIF [Suspect]
     Indication: MULTIPLE SCLEROSIS
     Route: 058
     Dates: start: 201209
  2. PARACETAMOL [Concomitant]
     Indication: ADVERSE DRUG REACTION
     Route: 048
     Dates: start: 201209

REACTIONS (1)
  - Oesophageal candidiasis [Recovered/Resolved]
